FAERS Safety Report 7531680-X (Version None)
Quarter: 2011Q2

REPORT INFORMATION
  Report Type: 
  Country: None (occurrence: None)
  Receive Date: 20110608
  Receipt Date: 20110524
  Transmission Date: 20111010
  Serious: No
  Sender: FDA-Public Use
  Company Number: US-B.I. PHARMACEUTICALS,INC./RIDGEFIELD-2011-BP-12575BP

PATIENT
  Age: 80 Year
  Sex: Male

DRUGS (8)
  1. TOPROL-XL [Concomitant]
     Indication: ATRIAL FIBRILLATION
     Dosage: 25 MG
     Dates: start: 20110504
  2. GLUCOSAMINE [Concomitant]
     Indication: SUPPLEMENTATION THERAPY
  3. CALCIUM CARBONATE [Concomitant]
     Indication: SUPPLEMENTATION THERAPY
  4. FLOMAX [Concomitant]
     Indication: URINE FLOW DECREASED
     Dosage: 0.4 MG
  5. PRADAXA [Suspect]
     Indication: ATRIAL FIBRILLATION
     Dosage: 300 MG
     Route: 048
     Dates: start: 20110120
  6. DILTIAZEM [Suspect]
     Indication: ATRIAL FIBRILLATION
     Dates: start: 20110101, end: 20110503
  7. FUROSEMIDE [Concomitant]
     Indication: DIURETIC THERAPY
     Dosage: 20 MG
  8. CLINORIL [Concomitant]
     Indication: ARTHRITIS
     Dosage: 400 MG

REACTIONS (5)
  - ERYTHEMA [None]
  - OEDEMA PERIPHERAL [None]
  - CONTUSION [None]
  - ARTHRALGIA [None]
  - LIMB DISCOMFORT [None]
